FAERS Safety Report 8824298 (Version 2)
Quarter: 2012Q4

REPORT INFORMATION
  Report Type: 
  Country: JP (occurrence: JP)
  Receive Date: 20121004
  Receipt Date: 20121024
  Transmission Date: 20130627
  Serious: Yes (Other)
  Sender: FDA-Public Use
  Company Number: JP-AMGEN-JPNSP2012062492

PATIENT
  Sex: Female

DRUGS (1)
  1. ENBREL [Suspect]
     Indication: PRODUCT USED FOR UNKNOWN INDICATION
     Dosage: 25 mg, UNK
     Route: 058

REACTIONS (6)
  - Rheumatoid arthritis [Unknown]
  - Oedema peripheral [Unknown]
  - Skin discolouration [Unknown]
  - Fracture [Unknown]
  - Weight increased [Unknown]
  - Fall [Unknown]
